FAERS Safety Report 24196072 (Version 1)
Quarter: 2024Q3

REPORT INFORMATION
  Report Type: Spontaneous
  Country: US (occurrence: US)
  Receive Date: 20240809
  Receipt Date: 20240809
  Transmission Date: 20241016
  Serious: No
  Sender: SANDOZ
  Company Number: US-SANDOZ-SDZ2024US061051

PATIENT

DRUGS (1)
  1. DEXTROAMPHET SACCHARAT, AMPHET ASPARTATE, DEXTROAMPHET SULFATE AND AMP [Suspect]
     Active Substance: AMPHETAMINE ASPARTATE\AMPHETAMINE SULFATE\DEXTROAMPHETAMINE SACCHARATE\DEXTROAMPHETAMINE SULFATE
     Indication: Product used for unknown indication
     Dosage: UNK
     Route: 065

REACTIONS (17)
  - Abdominal distension [Unknown]
  - Abdominal pain upper [Unknown]
  - Chills [Unknown]
  - Dehydration [Unknown]
  - Dry mouth [Unknown]
  - Feeling abnormal [Unknown]
  - Headache [Unknown]
  - Heart rate increased [Unknown]
  - Arthralgia [Unknown]
  - Hyperhidrosis [Unknown]
  - Myalgia [Unknown]
  - Tremor [Unknown]
  - Nausea [Unknown]
  - Dizziness [Unknown]
  - Vomiting [Unknown]
  - Product quality issue [Unknown]
  - Product substitution issue [Unknown]
